FAERS Safety Report 7068399-8 (Version None)
Quarter: 2010Q4

REPORT INFORMATION
  Report Type: 
  Country: None (occurrence: None)
  Receive Date: 20101028
  Receipt Date: 20101020
  Transmission Date: 20110411
  Serious: Yes (Other)
  Sender: FDA-Public Use
  Company Number: B0671491A

PATIENT
  Sex: Male
  Weight: 76.6 kg

DRUGS (1)
  1. MALARONE [Suspect]
     Indication: MALARIA PROPHYLAXIS
     Dosage: 250MG PER DAY
     Route: 048
     Dates: start: 20100720, end: 20100731

REACTIONS (9)
  - ANXIETY [None]
  - CONVERSION DISORDER [None]
  - DIARRHOEA [None]
  - DIZZINESS [None]
  - EMOTIONAL DISORDER [None]
  - HALLUCINATION [None]
  - NAUSEA [None]
  - PANIC ATTACK [None]
  - TINNITUS [None]
